FAERS Safety Report 5645000-9 (Version None)
Quarter: 2008Q1

REPORT INFORMATION
  Report Type: 
  Country: None (occurrence: None)
  Receive Date: 20080229
  Receipt Date: 20080220
  Transmission Date: 20080703
  Serious: Yes (Hospitalization)
  Sender: FDA-Public Use
  Company Number: CA-ELI_LILLY_AND_COMPANY-CA200711005843

PATIENT
  Sex: Female

DRUGS (12)
  1. FORTEO [Suspect]
     Indication: OSTEOPOROSIS
     Dosage: 20 UG, DAILY (1/D)
     Route: 058
     Dates: start: 20070907, end: 20071123
  2. ASPIRIN [Concomitant]
     Dosage: 81 MG, DAILY (1/D)
  3. HYDROCHLOROTHIAZIDE [Concomitant]
  4. DIAZEMULS [Concomitant]
     Indication: PREMEDICATION
     Dosage: 10 MG, OTHER
     Route: 042
     Dates: start: 20071205, end: 20071205
  5. FENTANYL [Concomitant]
     Indication: PREMEDICATION
     Dosage: 50 UG, OTHER
     Route: 042
     Dates: start: 20071205, end: 20071205
  6. VITAMIN D [Concomitant]
     Dosage: UNK, UNK
     Dates: start: 20071201, end: 20071201
  7. CALCIUM [Concomitant]
     Dosage: UNK, UNK
     Dates: start: 20071201, end: 20071201
  8. ZOPICLONE [Concomitant]
  9. IMODIUM [Concomitant]
  10. TYLENOL                                 /SCH/ [Concomitant]
  11. ALBUTEROL [Concomitant]
  12. ATROVENT [Concomitant]

REACTIONS (2)
  - COLITIS [None]
  - DIVERTICULUM [None]
